FAERS Safety Report 4752812-2 (Version None)
Quarter: 2005Q3

REPORT INFORMATION
  Report Type: 
  Country: None (occurrence: None)
  Receive Date: 20050823
  Receipt Date: 20050805
  Transmission Date: 20060218
  Serious: Yes (Hospitalization)
  Sender: FDA-Public Use
  Company Number: 216201

PATIENT
  Age: 68 Year
  Sex: Female
  Weight: 111.2 kg

DRUGS (17)
  1. AVASTIN [Suspect]
     Indication: COLON CANCER
     Dosage: 556 MG, Q2W, INTRAVENOUS
     Route: 042
     Dates: start: 20050623
  2. OXALIPLATIN(OXALIPLATIN) [Suspect]
     Indication: COLON CANCER
     Dosage: 143 MG, Q2W, INTRAVENOUS
     Route: 042
     Dates: start: 20050623
  3. P192699 [Suspect]
     Indication: COLON CANCER
     Dosage: 660 MG, Q2W, INTRAVENOUS
     Route: 042
     Dates: start: 20050623
  4. LEUCOVORIN CALCIUM [Suspect]
     Indication: COLON CANCER
     Dosage: 408 MG, Q2W, INTRAVENOUS
     Route: 042
     Dates: start: 20050623
  5. PANTOLOC (PANTOPRAZOLE) [Concomitant]
  6. UNKNOWN DRUG (GENERIC COMPONENTS) [Concomitant]
  7. ATHROTEC (DICLOFENAC SODIUM, MISOPROSTOL) [Concomitant]
  8. ELTROXIN (LEVOTHYROXINE SODIUM) [Concomitant]
  9. HYDROCHLOROTHIAZIDE [Concomitant]
  10. FOSAMAX [Concomitant]
  11. DIOVAN [Concomitant]
  12. DOMPERIDEONE (DOMPERIDONE) [Concomitant]
  13. MAXERAN (METOCLOPRAMIDE) [Concomitant]
  14. LASIX [Concomitant]
  15. POTASSIUM CHLORIDE [Concomitant]
  16. MAGNESIUM-ROUGIER (MAGNESIUM GLUCEPTATE) [Concomitant]
  17. MOUTHWASH NOS (MOUTHWASH NOS) [Concomitant]

REACTIONS (2)
  - DIARRHOEA [None]
  - HYPOMAGNESAEMIA [None]
